FAERS Safety Report 21891477 (Version 3)
Quarter: 2023Q1

REPORT INFORMATION
  Report Type: Spontaneous
  Country: CO (occurrence: CO)
  Receive Date: 20230120
  Receipt Date: 20230202
  Transmission Date: 20230417
  Serious: Yes (Hospitalization)
  Sender: FDA-Public Use
  Company Number: CO-009507513-2212COL007674

PATIENT
  Age: 86 Year
  Sex: Female

DRUGS (1)
  1. LAGEVRIO [Suspect]
     Active Substance: MOLNUPIRAVIR
     Indication: COVID-19 treatment
     Dosage: UNK
     Route: 048
     Dates: start: 202212

REACTIONS (2)
  - Colitis [Recovering/Resolving]
  - Product expiration date issue [Unknown]

NARRATIVE: CASE EVENT DATE: 20221201
